FAERS Safety Report 8292192 (Version 2)
Quarter: 2013Q2

REPORT INFORMATION
  Report Type: Spontaneous
  Country: US (occurrence: US)
  Receive Date: 20111215
  Receipt Date: 20130527
  Transmission Date: 20140414
  Serious: Yes (Congenital Anomaly, Other)
  Sender: FDA-Public Use
  Company Number: US-PFIZER INC-2011300960

PATIENT
  Sex: Female
  Weight: 2.9 kg

DRUGS (3)
  1. EFFEXOR XR [Suspect]
     Dosage: 112.5 MG, UNK
     Route: 064
     Dates: start: 2009, end: 2009
  2. EFFEXOR XR [Suspect]
     Dosage: 112.5 MG, UNK
     Route: 064
     Dates: start: 2010, end: 2010
  3. EFFEXOR [Suspect]
     Dosage: UNK
     Route: 064

REACTIONS (9)
  - Maternal exposure timing unspecified [Recovered/Resolved]
  - Congenital pulmonary valve disorder [Unknown]
  - Atrial septal defect [Unknown]
  - Right ventricular hypertrophy [Unknown]
  - Cardiomegaly [Unknown]
  - Congenital anomaly [Unknown]
  - Cyanosis [Unknown]
  - Weight gain poor [Unknown]
  - Bronchiolitis [Recovered/Resolved]
